FAERS Safety Report 5507577-3 (Version None)
Quarter: 2007Q4

REPORT INFORMATION
  Report Type: 
  Country: None (occurrence: None)
  Receive Date: 20071105
  Receipt Date: 20071105
  Transmission Date: 20080405
  Serious: Yes (Hospitalization)
  Sender: FDA-Public Use
  Company Number: None

PATIENT
  Sex: Male
  Weight: 71.2 kg

DRUGS (12)
  1. CYCLOPHOSPHAMIDE [Suspect]
     Dosage: 1380 MG
  2. DOXIL [Suspect]
     Dosage: 74 MG
  3. NEULASTA [Suspect]
     Dosage: 6 MG
  4. PREDNISONE TAB [Suspect]
     Dosage: 400 MG
  5. RITUXIMAB (MOAB C2B8 ANTI CD20, CHIMERIC) [Suspect]
     Dosage: 690 MG
  6. VINCRISTINE SULFATE [Suspect]
     Dosage: 2 MG
  7. AVODART [Concomitant]
  8. COREG CR [Concomitant]
  9. DARVON [Concomitant]
  10. PHENERGAN HCL [Concomitant]
  11. PREDNISONE TAB [Concomitant]
  12. VALTREX [Concomitant]

REACTIONS (5)
  - ABDOMINAL PAIN [None]
  - FREQUENT BOWEL MOVEMENTS [None]
  - PANCYTOPENIA [None]
  - PELVIC INFLAMMATORY DISEASE [None]
  - PYREXIA [None]
